FAERS Safety Report 9787260 (Version 1)
Quarter: 2013Q4

REPORT INFORMATION
  Report Type: Spontaneous
  Country: US (occurrence: US)
  Receive Date: 20131230
  Receipt Date: 20131230
  Transmission Date: 20140711
  Serious: No
  Sender: FDA-Public Use
  Company Number: US-009507513-1312USA009167

PATIENT
  Sex: Male

DRUGS (12)
  1. DULERA [Suspect]
     Indication: CHRONIC OBSTRUCTIVE PULMONARY DISEASE
     Dosage: 2 DF, BID
     Route: 055
     Dates: start: 2012, end: 201307
  2. DULERA [Suspect]
     Indication: EMPHYSEMA
     Dosage: UNK
     Route: 055
     Dates: start: 201308, end: 2013
  3. DULERA [Suspect]
     Indication: BRONCHITIS CHRONIC
     Dosage: 1 DF, BID, ONE PUFF IN MORNING AND ONE AT NIGHT
     Dates: start: 201312
  4. SYMBICORT [Suspect]
     Dosage: 2 DF, QD
  5. BUSPIRONE HYDROCHLORIDE [Suspect]
     Dosage: UNK
     Dates: start: 2013
  6. AZITHROMYCIN [Concomitant]
  7. PRAVASTATIN SODIUM [Concomitant]
  8. VERAPAMIL [Concomitant]
  9. LISINOPRIL [Concomitant]
  10. PROAIR (ALBUTEROL SULFATE) [Concomitant]
     Dosage: MORE FREQUENTLY
     Route: 055
  11. ALBUTEROL SULFATE [Concomitant]
     Dosage: NEBULISER
  12. SPIRIVA [Suspect]

REACTIONS (5)
  - Respiration abnormal [Recovered/Resolved]
  - Anxiety [Recovering/Resolving]
  - Visual impairment [Recovering/Resolving]
  - Feeling abnormal [Recovering/Resolving]
  - Photopsia [Recovering/Resolving]
